FAERS Safety Report 7954688-9 (Version None)
Quarter: 2011Q4

REPORT INFORMATION
  Report Type: 
  Country: None (occurrence: None)
  Receive Date: 20111202
  Receipt Date: 20111130
  Transmission Date: 20120403
  Serious: Yes (Death)
  Sender: FDA-Public Use
  Company Number: PHHY2010BE12340

PATIENT
  Sex: Male

DRUGS (1)
  1. CATAFLAM [Suspect]
     Dosage: 50 MG, 3 TO 4 TABLETS DAILY
     Route: 064

REACTIONS (7)
  - INTRA-UTERINE DEATH [None]
  - ADRENAL DISORDER [None]
  - PULMONARY CONGESTION [None]
  - FOETAL EXPOSURE DURING PREGNANCY [None]
  - ASPHYXIA [None]
  - UMBILICAL CORD AROUND NECK [None]
  - OLIGOHYDRAMNIOS [None]
